FAERS Safety Report 20029719 (Version 2)
Quarter: 2022Q1

REPORT INFORMATION
  Report Type: Spontaneous
  Country: JP (occurrence: JP)
  Receive Date: 20211103
  Receipt Date: 20220225
  Transmission Date: 20220423
  Serious: Yes (Other)
  Sender: FDA-Public Use
  Company Number: JP-OTSUKA-2021_037332

PATIENT
  Age: 54 Year
  Sex: Male

DRUGS (5)
  1. BUSULFEX [Suspect]
     Active Substance: BUSULFAN
     Indication: B-cell type acute leukaemia
     Dosage: 0.8MG/KG X1, UNK
     Route: 065
  2. BUSULFEX [Suspect]
     Active Substance: BUSULFAN
     Dosage: 0.8MG/KG X3, UNK
     Route: 065
  3. BUSULFEX [Suspect]
     Active Substance: BUSULFAN
     Dosage: 0.8MG/KG X4. UNK
     Route: 065
  4. FLUDARABINE PHOSPHATE [Suspect]
     Active Substance: FLUDARABINE PHOSPHATE
     Indication: B-cell type acute leukaemia
     Dosage: 30MG/M2, UNK
     Route: 065
  5. MELPHALAN [Suspect]
     Active Substance: MELPHALAN
     Indication: B-cell type acute leukaemia
     Dosage: 40MG/M2, UNK
     Route: 065

REACTIONS (4)
  - Ascites [Recovered/Resolved]
  - Venoocclusive liver disease [Unknown]
  - Venoocclusive liver disease [Unknown]
  - Portal vein flow decreased [Recovered/Resolved]
